FAERS Safety Report 8486604-8 (Version None)
Quarter: 2012Q3

REPORT INFORMATION
  Report Type: 
  Country: None (occurrence: None)
  Receive Date: 20120703
  Receipt Date: 20120621
  Transmission Date: 20120928
  Serious: Yes (Other)
  Sender: FDA-Public Use
  Company Number: NL-ELI_LILLY_AND_COMPANY-NL201203005166

PATIENT
  Age: 55 Year
  Sex: Male
  Weight: 60 kg

DRUGS (1)
  1. OLANZAPINE [Suspect]
     Dosage: 210 MG, Q 2 WEEKS
     Dates: start: 20110607

REACTIONS (10)
  - FATIGUE [None]
  - ANXIETY [None]
  - DIZZINESS [None]
  - GAIT DISTURBANCE [None]
  - DELIRIUM [None]
  - MALAISE [None]
  - NAUSEA [None]
  - DISORIENTATION [None]
  - ASTHENIA [None]
  - CONFUSIONAL STATE [None]
